FAERS Safety Report 4646872-7 (Version None)
Quarter: 2005Q1

REPORT INFORMATION
  Report Type: 
  Country: None (occurrence: None)
  Receive Date: 20050331
  Receipt Date: 20050216
  Transmission Date: 20050727
  Serious: No
  Sender: FDA-Public Use
  Company Number: 05P-163-0291005-00

PATIENT
  Age: 62 Year
  Sex: Male
  Weight: 63.5036 kg

DRUGS (3)
  1. HUMIRA [Suspect]
     Indication: RHEUMATOID ARTHRITIS
     Dosage: 40 MG, 1 IN 2 WK, SUBCUTANEOUS
     Route: 058
     Dates: start: 20041101, end: 20041201
  2. PREDNISONE [Concomitant]
  3. PARACETAMOL [Concomitant]

REACTIONS (5)
  - ARTHRALGIA [None]
  - JOINT LOCK [None]
  - PAIN IN EXTREMITY [None]
  - SHOULDER PAIN [None]
  - UNEVALUABLE EVENT [None]
